FAERS Safety Report 23465906 (Version 3)
Quarter: 2024Q1

REPORT INFORMATION
  Report Type: Spontaneous
  Country: SK (occurrence: None)
  Receive Date: 20240201
  Receipt Date: 20240216
  Transmission Date: 20240410
  Serious: Yes (Hospitalization)
  Sender: FDA-Public Use
  Company Number: SK-ROCHE-3501529

PATIENT
  Age: 81 Year
  Sex: Female

DRUGS (16)
  1. PHESGO [Suspect]
     Active Substance: HYALURONIDASE-ZZXF\PERTUZUMAB\TRASTUZUMAB
     Indication: Breast cancer
     Dosage: CYCLE 1 DOSE OF 1200 MG/600 MG?STANDARD REGIMEN AT A DOSE OF 600 MG/600 MG
     Route: 058
     Dates: start: 20231127
  2. LETROZOLE [Concomitant]
     Active Substance: LETROZOLE
     Dosage: 1 TABLET
  3. NOVALGIN (SLOVAKIA) [Concomitant]
     Dosage: 2 TABLET
  4. XARELTO [Concomitant]
     Active Substance: RIVAROXABAN
  5. TELMISARTAN [Concomitant]
     Active Substance: TELMISARTAN
  6. SPIRONOLACTONE [Concomitant]
     Active Substance: SPIRONOLACTONE
  7. FUROSEMIDE [Concomitant]
     Active Substance: FUROSEMIDE
  8. POTASSIUM CHLORIDE [Concomitant]
     Active Substance: POTASSIUM CHLORIDE
  9. MIRTAZAPINE [Concomitant]
     Active Substance: MIRTAZAPINE
  10. XANAX [Concomitant]
     Active Substance: ALPRAZOLAM
  11. DIOSMIN\HESPERIDIN [Concomitant]
     Active Substance: DIOSMIN\HESPERIDIN
  12. ESOMEPRAZOLE MAGNESIUM [Concomitant]
     Active Substance: ESOMEPRAZOLE\ESOMEPRAZOLE MAGNESIUM\ESOMEPRAZOLE MAGNESIUM DIHYDRATE
  13. ANALGIN (SLOVENIA) [Concomitant]
  14. METOCLOPRAMIDE HYDROCHLORIDE [Concomitant]
     Active Substance: METOCLOPRAMIDE HYDROCHLORIDE
  15. ALGIFEN (SLOVAKIA) [Concomitant]
  16. ATROPINE SULFATE\DIPHENOXYLATE HYDROCHLORIDE [Concomitant]
     Active Substance: ATROPINE SULFATE\DIPHENOXYLATE HYDROCHLORIDE

REACTIONS (1)
  - Atrial fibrillation [Unknown]

NARRATIVE: CASE EVENT DATE: 20231206
